FAERS Safety Report 8775964 (Version 1)
Quarter: 2012Q4

REPORT INFORMATION
  Report Type: 
  Country: IT (occurrence: IT)
  Receive Date: 20120911
  Receipt Date: 20120911
  Transmission Date: 20130627
  Serious: Yes (Other)
  Sender: FDA-Public Use
  Company Number: IT-TEVA-356577ISR

PATIENT
  Age: 67 Year
  Sex: Female

DRUGS (7)
  1. GEMCITABINA TEVA [Suspect]
     Indication: PANCREATIC CARCINOMA
     Dosage: 1800 Milligram Daily;
     Route: 042
     Dates: start: 20120823, end: 20120823
  2. ELOXATIN [Suspect]
     Indication: PANCREATIC CARCINOMA
     Dosage: 180 Milligram Daily;
     Route: 042
     Dates: start: 20120823, end: 20120823
  3. LANSOPRAZOLO [Concomitant]
     Dosage: 30 Milligram Daily;
     Route: 048
  4. SOLDESAM [Concomitant]
     Indication: PREMEDICATION
     Dosage: 8 Milligram Daily;
     Route: 042
  5. RANIDIL [Concomitant]
     Indication: PREMEDICATION
     Dosage: 8 Milligram Daily;
     Route: 042
  6. ZOFRAN [Concomitant]
     Indication: PREMEDICATION
     Dosage: 8 Milligram Daily;
     Route: 042
  7. TARGIN [Concomitant]
     Dosage: 20 Milligram Daily;

REACTIONS (1)
  - Laryngospasm [Recovered/Resolved]
